FAERS Safety Report 22040607 (Version 1)
Quarter: 2023Q1

REPORT INFORMATION
  Report Type: Spontaneous
  Country: ES (occurrence: ES)
  Receive Date: 20230227
  Receipt Date: 20230227
  Transmission Date: 20230417
  Serious: Yes (Hospitalization)
  Sender: FDA-Public Use
  Company Number: None

PATIENT
  Age: 80 Year
  Sex: Female

DRUGS (7)
  1. QUETIAPINE [Suspect]
     Active Substance: QUETIAPINE
     Indication: Persistent depressive disorder
     Dosage: 25 MG, Q8H (C/8 HORAS)
     Route: 048
     Dates: start: 20210330, end: 20220928
  2. PARAFLUDETEN [Concomitant]
     Indication: Cataract
     Dosage: 650 MG DECOCE (20 COMPRIMIDOS)
     Route: 048
     Dates: start: 20211112
  3. LEVETIRACETAM [Concomitant]
     Active Substance: LEVETIRACETAM
     Indication: Partial seizures
     Dosage: 500 MG DECOCE
     Route: 048
     Dates: start: 20131022
  4. ENALAPRIL [Concomitant]
     Active Substance: ENALAPRIL
     Indication: Essential hypertension
     Dosage: 20 MG DE (COMPRIMIDO )
     Route: 048
     Dates: start: 20210108
  5. BRINTELLIX [Concomitant]
     Active Substance: VORTIOXETINE HYDROBROMIDE
     Indication: Persistent depressive disorder
     Dosage: 5 MG DE
     Route: 048
     Dates: start: 20210514
  6. OMEPRAZOLE [Concomitant]
     Active Substance: OMEPRAZOLE
     Indication: Dyspepsia
     Dosage: 20 MG A-DE (56 C?PSULAS (FRASCO))
     Route: 048
     Dates: start: 20121222
  7. TRAZODONE HYDROCHLORIDE [Concomitant]
     Active Substance: TRAZODONE HYDROCHLORIDE
     Indication: Persistent depressive disorder
     Dosage: 100 MG, Q24H (C/24 H NOC) (60 COMPRIMIDOS (BLISTER ALUMINIO/PVDC-PE))
     Route: 048
     Dates: start: 20200910

REACTIONS (1)
  - Hypersomnia [Recovered/Resolved]

NARRATIVE: CASE EVENT DATE: 20220921
